FAERS Safety Report 23682826 (Version 3)
Quarter: 2025Q2

REPORT INFORMATION
  Report Type: Spontaneous
  Country: US (occurrence: US)
  Receive Date: 20240328
  Receipt Date: 20250404
  Transmission Date: 20250717
  Serious: Yes (Other)
  Sender: AMGEN
  Company Number: US-AMGEN-USASP2024059778

PATIENT
  Sex: Female

DRUGS (2)
  1. OTEZLA [Suspect]
     Active Substance: APREMILAST
     Indication: Psoriatic arthropathy
     Dosage: 30 MILLIGRAM, BID
     Route: 048
     Dates: start: 20240323
  2. RANOLAZINE [Concomitant]
     Active Substance: RANOLAZINE
     Route: 065

REACTIONS (4)
  - Psoriatic arthropathy [Unknown]
  - Therapy non-responder [Unknown]
  - Product supply issue [Unknown]
  - Product dose omission issue [Unknown]
